FAERS Safety Report 24734250 (Version 1)
Quarter: 2024Q4

REPORT INFORMATION
  Report Type: Spontaneous
  Country: DE (occurrence: DE)
  Receive Date: 20241214
  Receipt Date: 20241214
  Transmission Date: 20250115
  Serious: No
  Sender: ALKEM
  Company Number: DE-ALKEM LABORATORIES LIMITED-DE-ALKEM-2024-07588

PATIENT
  Age: 5 Year
  Sex: Female

DRUGS (10)
  1. MYCOPHENOLATE MOFETIL [Suspect]
     Active Substance: MYCOPHENOLATE MOFETIL
     Indication: Nephrotic syndrome
     Dosage: 1187 GRAM PER SQUARE METRE (DURATION 2.23 YEARS)
     Route: 065
  2. MYCOPHENOLATE MOFETIL [Suspect]
     Active Substance: MYCOPHENOLATE MOFETIL
     Indication: Focal segmental glomerulosclerosis
  3. CYCLOSPORINE [Concomitant]
     Active Substance: CYCLOSPORINE
     Indication: Nephrotic syndrome
     Dosage: UNK
     Route: 048
  4. CYCLOSPORINE [Concomitant]
     Active Substance: CYCLOSPORINE
     Indication: Focal segmental glomerulosclerosis
  5. METHYLPREDNISOLONE [Concomitant]
     Active Substance: METHYLPREDNISOLONE
     Indication: Nephrotic syndrome
     Dosage: UNK (HIGH DOSE)
     Route: 042
  6. METHYLPREDNISOLONE [Concomitant]
     Active Substance: METHYLPREDNISOLONE
     Indication: Focal segmental glomerulosclerosis
     Dosage: 5 MILLIGRAM/KILOGRAM, QD
     Route: 042
  7. PREDNISOLONE [Concomitant]
     Active Substance: PREDNISOLONE
     Indication: Nephrotic syndrome
     Dosage: 30 MILLIGRAM/SQ. METER, QD
     Route: 048
  8. PREDNISOLONE [Concomitant]
     Active Substance: PREDNISOLONE
     Indication: Focal segmental glomerulosclerosis
     Dosage: 30 MILLIGRAM/SQ. METER, QOD
     Route: 048
  9. PREDNISOLONE [Concomitant]
     Active Substance: PREDNISOLONE
     Dosage: 20 MILLIGRAM/SQ. METER, QOD
     Route: 048
  10. PREDNISOLONE [Concomitant]
     Active Substance: PREDNISOLONE
     Dosage: 10 MILLIGRAM/SQ. METER, QOD
     Route: 048

REACTIONS (3)
  - Anaemia [Unknown]
  - Nausea [Recovered/Resolved]
  - Abdominal pain [Recovered/Resolved]
